FAERS Safety Report 9218564 (Version 1)
Quarter: 2013Q2

REPORT INFORMATION
  Report Type: Spontaneous
  Country: US (occurrence: None)
  Receive Date: 20130405
  Receipt Date: 20130405
  Transmission Date: 20140414
  Serious: Yes (Hospitalization)
  Sender: FDA-Public Use
  Company Number: None

PATIENT
  Age: 66 Year
  Sex: Male
  Weight: 111.8 kg

DRUGS (1)
  1. RISPERIDONE [Suspect]
     Dosage: MG PO
     Route: 048
     Dates: start: 20120710

REACTIONS (2)
  - Dizziness [None]
  - Loss of consciousness [None]
